FAERS Safety Report 7684398-7 (Version None)
Quarter: 2011Q3

REPORT INFORMATION
  Report Type: 
  Country: None (occurrence: None)
  Receive Date: 20110816
  Receipt Date: 20110808
  Transmission Date: 20111222
  Serious: Yes (Other)
  Sender: FDA-Public Use
  Company Number: US-BIOGENIDEC-2011BI025224

PATIENT
  Sex: Female
  Weight: 57 kg

DRUGS (4)
  1. AVONEX [Suspect]
     Route: 030
     Dates: start: 20110601
  2. MIRAPEX [Concomitant]
     Indication: RESTLESS LEGS SYNDROME
  3. AVONEX [Suspect]
     Indication: MULTIPLE SCLEROSIS
     Route: 030
     Dates: start: 20000911
  4. SYMMETREL [Concomitant]

REACTIONS (1)
  - BREAST CANCER [None]
